FAERS Safety Report 12899680 (Version 1)
Quarter: 2016Q4

REPORT INFORMATION
  Report Type: Spontaneous
  Country: US (occurrence: US)
  Receive Date: 20161031
  Receipt Date: 20161031
  Transmission Date: 20170207
  Serious: Yes (Other)
  Sender: FDA-Public Use
  Company Number: None

PATIENT
  Age: 37 Year
  Sex: Female
  Weight: 68.85 kg

DRUGS (1)
  1. SERTRALINE [Suspect]
     Active Substance: SERTRALINE HYDROCHLORIDE
     Indication: PERINATAL DEPRESSION
     Dosage: ?          QUANTITY:1 TABLET(S);?
     Route: 048
     Dates: start: 20160920, end: 20161030

REACTIONS (6)
  - Loss of consciousness [None]
  - Dizziness [None]
  - Emotional disorder [None]
  - Nausea [None]
  - Hot flush [None]
  - Vertigo [None]

NARRATIVE: CASE EVENT DATE: 20161004
